FAERS Safety Report 19892464 (Version 1)
Quarter: 2021Q3

REPORT INFORMATION
  Report Type: Report from Study
  Country: None (occurrence: RO)
  Receive Date: 20210929
  Receipt Date: 20210929
  Transmission Date: 20211014
  Serious: Yes (Death)
  Sender: FDA-Public Use
  Company Number: RO-ABBVIE-21K-135-4096315-00

PATIENT
  Age: 63 Year
  Sex: Male

DRUGS (5)
  1. DUODOPA [Suspect]
     Active Substance: CARBIDOPA\LEVODOPA
     Indication: PARKINSON^S DISEASE
     Dosage: DM=8.50 DC=2.80 ED=2.00 NRED=0; DMN=0.00 DCN=0.00 EDN=0.00 NREDN=0
     Route: 050
     Dates: start: 20130226, end: 20210925
  2. DUODOPA [Suspect]
     Active Substance: CARBIDOPA\LEVODOPA
  3. RIVOTRIL [Concomitant]
     Active Substance: CLONAZEPAM
     Indication: ORGANIC BRAIN SYNDROME
     Dosage: THREE TIMES A DAY, 0.5 TABLET
     Route: 048
     Dates: start: 20200824, end: 20210925
  4. SEROQUEL [Concomitant]
     Active Substance: QUETIAPINE FUMARATE
     Indication: ORGANIC BRAIN SYNDROME
     Dosage: IN THE EVENING
     Route: 048
     Dates: start: 20110401, end: 20210925
  5. SANVAL [Concomitant]
     Active Substance: ZOLPIDEM TARTRATE
     Indication: SLEEP DISORDER
     Dosage: IN THE EVENING
     Route: 048
     Dates: start: 20201222, end: 20210925

REACTIONS (1)
  - Cardio-respiratory arrest [Fatal]

NARRATIVE: CASE EVENT DATE: 20210925
